FAERS Safety Report 20452276 (Version 1)
Quarter: 2022Q1

REPORT INFORMATION
  Report Type: Report from Study
  Country: US (occurrence: US)
  Receive Date: 20220210
  Receipt Date: 20220210
  Transmission Date: 20220423
  Serious: Yes (Other)
  Sender: FDA-Public Use
  Company Number: US-ABBVIE-22K-163-4266923-00

PATIENT
  Sex: Male

DRUGS (1)
  1. IMBRUVICA [Suspect]
     Active Substance: IBRUTINIB
     Indication: Chronic lymphocytic leukaemia
     Route: 048
     Dates: start: 201901

REACTIONS (5)
  - Intraocular lens implant [Unknown]
  - Peripheral swelling [Unknown]
  - Platelet count increased [Unknown]
  - Nail infection [Unknown]
  - Hypertension [Unknown]
